FAERS Safety Report 4836433-9 (Version None)
Quarter: 2005Q4

REPORT INFORMATION
  Report Type: 
  Country: None (occurrence: None)
  Receive Date: 20051123
  Receipt Date: 20051025
  Transmission Date: 20060501
  Serious: Yes (Life-Threatening, Hospitalization)
  Sender: FDA-Public Use
  Company Number: PHBS2005JP15805

PATIENT
  Age: 57 Year
  Sex: Male
  Weight: 39 kg

DRUGS (6)
  1. VOLTAREN [Suspect]
     Indication: PAIN
     Dosage: 25 MG/DAY
     Route: 054
     Dates: start: 20051024, end: 20051024
  2. LOXONIN [Concomitant]
     Indication: BACK PAIN
     Dosage: 60 MG/DAY
     Route: 048
     Dates: start: 20051005, end: 20050101
  3. GASTER D [Concomitant]
     Indication: GASTRIC ULCER
     Dosage: 40 MG/DAY
     Route: 048
     Dates: start: 20050820
  4. ALLOID G [Concomitant]
     Indication: GASTRIC ULCER
     Dosage: 30 ML/DAY
     Route: 048
     Dates: start: 20050820
  5. ALESION [Concomitant]
     Indication: URTICARIA
     Dosage: 20 MG/DAY
     Route: 048
     Dates: start: 20050921
  6. UROCALUN [Concomitant]
     Indication: CALCULUS URETERIC
     Dosage: 675 MG/DAY
     Route: 048
     Dates: start: 20051005, end: 20051024

REACTIONS (11)
  - ANAPHYLACTIC REACTION [None]
  - BLOOD GLUCOSE INCREASED [None]
  - BLOOD PH DECREASED [None]
  - DEPRESSED LEVEL OF CONSCIOUSNESS [None]
  - EYE LUXATION [None]
  - GENERALISED ERYTHEMA [None]
  - HEART RATE DECREASED [None]
  - LYMPHOCYTE COUNT INCREASED [None]
  - NEUTROPHIL COUNT DECREASED [None]
  - RESPIRATORY ARREST [None]
  - WHITE BLOOD CELL COUNT DECREASED [None]
